FAERS Safety Report 11179547 (Version 3)
Quarter: 2015Q2

REPORT INFORMATION
  Report Type: Spontaneous
  Country: US (occurrence: US)
  Receive Date: 20150611
  Receipt Date: 20150629
  Transmission Date: 20150821
  Serious: No
  Sender: FDA-Public Use
  Company Number: US-009507513-1506USA005586

PATIENT
  Age: 35 Year
  Sex: Female
  Weight: 95.24 kg

DRUGS (1)
  1. IMPLANON [Suspect]
     Active Substance: ETONOGESTREL
     Indication: CONTRACEPTION
     Dosage: FREQUENCY: 3 YEARS
     Route: 059
     Dates: start: 20120516

REACTIONS (3)
  - Amenorrhoea [Not Recovered/Not Resolved]
  - Medical device complication [Not Recovered/Not Resolved]
  - Incorrect drug administration duration [Unknown]

NARRATIVE: CASE EVENT DATE: 20120516
